FAERS Safety Report 11889611 (Version 5)
Quarter: 2016Q2

REPORT INFORMATION
  Report Type: Spontaneous
  Country: SE (occurrence: SE)
  Receive Date: 20160105
  Receipt Date: 20160408
  Transmission Date: 20160815
  Serious: Yes (Other)
  Sender: FDA-Public Use
  Company Number: SE-PFIZER INC-2015442951

PATIENT
  Age: 69 Year
  Sex: Male

DRUGS (13)
  1. BEHEPAN [Concomitant]
     Active Substance: HYDROXOCOBALAMIN
  2. AMLODIPINE [Concomitant]
     Active Substance: AMLODIPINE BESYLATE
  3. FORXIGA [Concomitant]
     Active Substance: DAPAGLIFLOZIN
  4. GLIMEPIRIDE. [Concomitant]
     Active Substance: GLIMEPIRIDE
  5. CAVERJECT [Suspect]
     Active Substance: ALPROSTADIL
     Indication: ERECTILE DYSFUNCTION
     Dosage: 10 UG, UNK
     Route: 017
     Dates: start: 2008
  6. BETMIGA [Concomitant]
     Active Substance: MIRABEGRON
  7. METOPROLOL. [Concomitant]
     Active Substance: METOPROLOL
  8. SENSAVAL [Concomitant]
  9. VESICARE [Concomitant]
     Active Substance: SOLIFENACIN SUCCINATE
  10. ALVEDON [Concomitant]
     Active Substance: ACETAMINOPHEN
  11. CRESTOR [Concomitant]
     Active Substance: ROSUVASTATIN CALCIUM
  12. ENALAPRIL COMP [Concomitant]
     Active Substance: ENALAPRIL MALEATE\HYDROCHLOROTHIAZIDE
  13. WARAN [Concomitant]
     Active Substance: WARFARIN SODIUM
     Dosage: UNK

REACTIONS (7)
  - Foreign body [Not Recovered/Not Resolved]
  - Impaired healing [Recovered/Resolved]
  - Wound infection bacterial [Recovered/Resolved]
  - Product quality issue [Not Recovered/Not Resolved]
  - Suture related complication [Not Recovered/Not Resolved]
  - Injection site injury [Not Recovered/Not Resolved]
  - Penile pain [Not Recovered/Not Resolved]

NARRATIVE: CASE EVENT DATE: 20151209
